FAERS Safety Report 16315611 (Version 1)
Quarter: 2019Q2

REPORT INFORMATION
  Report Type: Report from Study
  Country: US (occurrence: US)
  Receive Date: 20190515
  Receipt Date: 20190515
  Transmission Date: 20190711
  Serious: Yes (Hospitalization, Other)
  Sender: FDA-Public Use
  Company Number: US-ASTELLAS-2018US053177

PATIENT
  Age: 75 Year
  Sex: Female

DRUGS (3)
  1. ISAVUCONAZOLE [Suspect]
     Active Substance: ISAVUCONAZOLE
     Route: 048
  2. SERTRALINE [Concomitant]
     Active Substance: SERTRALINE HYDROCHLORIDE
     Indication: PRODUCT USED FOR UNKNOWN INDICATION
     Dosage: UNK UNK, UNKNOWN FREQ.
     Route: 065
  3. ISAVUCONAZOLE [Suspect]
     Active Substance: ISAVUCONAZOLE
     Indication: ASPERGILLUS INFECTION
     Dosage: 2 CAPSULES, ONCE DAILY
     Route: 048
     Dates: start: 20181211

REACTIONS (7)
  - Thrombosis [Unknown]
  - Retching [Unknown]
  - Wrong technique in product usage process [Unknown]
  - Hallucination [Unknown]
  - Delirium [Unknown]
  - Agitation [Unknown]
  - Product use complaint [Unknown]

NARRATIVE: CASE EVENT DATE: 201812
